FAERS Safety Report 8407630-0 (Version None)
Quarter: 2012Q2

REPORT INFORMATION
  Report Type: 
  Country: None (occurrence: None)
  Receive Date: 20120529
  Receipt Date: 20080523
  Transmission Date: 20120825
  Serious: Yes (Hospitalization)
  Sender: FDA-Public Use
  Company Number: 02100-JPN-07-0724

PATIENT
  Age: 75 Year
  Sex: Male
  Weight: 50.4 kg

DRUGS (11)
  1. PARIET (SODIUM RABEPRAZOLE) [Concomitant]
  2. LENDORMIN D (BROTIZOLAM) [Concomitant]
  3. PLETAL [Suspect]
     Dosage: 100 MG, BID, ORAL ; 100 MG, BID, ORAL
     Route: 048
     Dates: start: 20050706, end: 20050725
  4. PLETAL [Suspect]
     Dosage: 100 MG, BID, ORAL ; 100 MG, BID, ORAL
     Route: 048
     Dates: start: 20070910, end: 20071030
  5. DIOVAN [Concomitant]
  6. ALLOPURINOL [Concomitant]
  7. FUROSEMIDE [Concomitant]
  8. URIEF (SILODOSIN) CAPSULE, 4MG [Suspect]
     Indication: BENIGN PROSTATIC HYPERPLASIA
     Dosage: 4 MG, BID, ORAL
     Route: 048
     Dates: start: 20070906, end: 20071031
  9. FLAVOXATE HYDROCHLORIDE [Concomitant]
  10. GOSHA-JINKI-GAN (GOSHA-JINKI-GAN) [Concomitant]
  11. PREDNISOLONE [Concomitant]

REACTIONS (5)
  - CEREBRAL INFARCTION [None]
  - HEMIPLEGIA [None]
  - INTERSTITIAL LUNG DISEASE [None]
  - DIVERTICULUM INTESTINAL HAEMORRHAGIC [None]
  - DRUG INEFFECTIVE [None]
